FAERS Safety Report 11929052 (Version 2)
Quarter: 2016Q1

REPORT INFORMATION
  Report Type: Spontaneous
  Country: CO (occurrence: CO)
  Receive Date: 20160120
  Receipt Date: 20160126
  Transmission Date: 20160526
  Serious: Yes (Death)
  Sender: FDA-Public Use
  Company Number: CO-ROCHE-1696683

PATIENT
  Age: 70 Year
  Sex: Male
  Weight: 60 kg

DRUGS (1)
  1. ACTILYSE [Suspect]
     Active Substance: ALTEPLASE
     Indication: ISCHAEMIC STROKE
     Dosage: 0.9 MG X KG (60 KG)
     Route: 042
     Dates: start: 201512

REACTIONS (2)
  - Hypertension [Fatal]
  - Central nervous system haemorrhage [Fatal]

NARRATIVE: CASE EVENT DATE: 201512
